FAERS Safety Report 16528009 (Version 1)
Quarter: 2019Q3

REPORT INFORMATION
  Report Type: Spontaneous
  Country: GB (occurrence: GB)
  Receive Date: 20190704
  Receipt Date: 20190704
  Transmission Date: 20191004
  Serious: Yes (Other)
  Sender: FDA-Public Use
  Company Number: GB-AMGEN-GBRSP2019104343

PATIENT
  Age: 61 Year
  Sex: Female

DRUGS (2)
  1. MERCAPTOPURINE. [Concomitant]
     Active Substance: MERCAPTOPURINE
  2. ADALIMUMAB [Suspect]
     Active Substance: ADALIMUMAB
     Indication: COLITIS ULCERATIVE
     Dosage: 40 MILLIGRAM, Q2WK
     Route: 058

REACTIONS (4)
  - Product substitution issue [Unknown]
  - Arthritis [Unknown]
  - Injection site pain [Recovered/Resolved]
  - Colitis ulcerative [Unknown]
